FAERS Safety Report 13155722 (Version 1)
Quarter: 2017Q1

REPORT INFORMATION
  Report Type: Spontaneous
  Country: US (occurrence: US)
  Receive Date: 20170126
  Receipt Date: 20170126
  Transmission Date: 20170428
  Serious: No
  Sender: FDA-Public Use
  Company Number: US-ROCHE-1218240

PATIENT
  Age: 32 Year
  Sex: Male

DRUGS (2)
  1. DEPAKOTE ER [Suspect]
     Active Substance: DIVALPROEX SODIUM
     Indication: TEMPORAL LOBE EPILEPSY
     Route: 048
  2. VALIUM [Suspect]
     Active Substance: DIAZEPAM
     Indication: TEMPORAL LOBE EPILEPSY
     Route: 048

REACTIONS (6)
  - Amnesia [Not Recovered/Not Resolved]
  - Fatigue [Unknown]
  - Unevaluable event [Unknown]
  - Agitation [Unknown]
  - Somnolence [Unknown]
  - Hostility [Unknown]
